FAERS Safety Report 25167187 (Version 1)
Quarter: 2025Q2

REPORT INFORMATION
  Report Type: Spontaneous
  Country: US (occurrence: None)
  Receive Date: 20250406
  Receipt Date: 20250406
  Transmission Date: 20250716
  Serious: Yes (Life-Threatening)
  Sender: FDA-CTU
  Company Number: None

PATIENT
  Age: 64 Year
  Sex: Male
  Weight: 99 kg

DRUGS (14)
  1. COLCHICINE [Suspect]
     Active Substance: COLCHICINE
     Indication: Pericardial effusion
     Dosage: FREQUENCY : TWICE A DAY;?
     Route: 048
     Dates: start: 20250304, end: 20250308
  2. COLCHICINE [Suspect]
     Active Substance: COLCHICINE
     Indication: Pericarditis
  3. LACTULOSE [Concomitant]
     Active Substance: LACTULOSE
  4. ATORVASTATIN [Concomitant]
     Active Substance: ATORVASTATIN
  5. gabapentin, [Concomitant]
  6. MIDODRINE [Concomitant]
     Active Substance: MIDODRINE
  7. ELIQUIS [Concomitant]
     Active Substance: APIXABAN
  8. PLAVIX [Concomitant]
     Active Substance: CLOPIDOGREL BISULFATE
  9. ASPIRIN [Concomitant]
     Active Substance: ASPIRIN
  10. PANTOPRAZOLE [Concomitant]
     Active Substance: PANTOPRAZOLE
  11. INSULIN LISPRO [Concomitant]
     Active Substance: INSULIN LISPRO
  12. POTASSIUM CHLORIDE [Concomitant]
     Active Substance: POTASSIUM CHLORIDE
  13. REVEFENACIN [Concomitant]
     Active Substance: REVEFENACIN
  14. INSULIN GLARGINE [Concomitant]
     Active Substance: INSULIN GLARGINE

REACTIONS (13)
  - Fatigue [None]
  - Asthenia [None]
  - Myalgia [None]
  - Pain [None]
  - Decreased appetite [None]
  - Depressed level of consciousness [None]
  - Confusional state [None]
  - Toxicity to various agents [None]
  - Ammonia increased [None]
  - Lethargy [None]
  - Somnolence [None]
  - Aggression [None]
  - Liver disorder [None]

NARRATIVE: CASE EVENT DATE: 20250405
